FAERS Safety Report 10466965 (Version 3)
Quarter: 2014Q4

REPORT INFORMATION
  Report Type: Report from Study
  Country: US (occurrence: US)
  Receive Date: 20140922
  Receipt Date: 20141031
  Transmission Date: 20150528
  Serious: Yes (Hospitalization)
  Sender: FDA-Public Use
  Company Number: US-AMGEN-USACT2014071417

PATIENT
  Age: 78 Year
  Sex: Female
  Weight: 69.3 kg

DRUGS (3)
  1. PANITUMUMAB [Suspect]
     Active Substance: PANITUMUMAB
     Indication: COLORECTAL CANCER
     Dosage: 420MG EVERY TWO WEEKS (CYC)
     Route: 042
     Dates: start: 20140611
  2. DABRAFENIB [Concomitant]
     Active Substance: DABRAFENIB
     Indication: COLORECTAL CANCER
     Dosage: 150MG TWICE PER DAY, (2D NO OF SEPRATE DOSES : 2 INTERVAL : 1 DAYS)
     Route: 048
     Dates: start: 20140611
  3. TRAMETINIB [Concomitant]
     Active Substance: TRAMETINIB
     Indication: COLORECTAL CANCER
     Dosage: 2MG PER DAY, (1D NO OF SEPRATE DOSES : 1 INTERVAL : 1 DAYS)
     Route: 048
     Dates: start: 20140611

REACTIONS (1)
  - Urinary tract infection [Recovered/Resolved]

NARRATIVE: CASE EVENT DATE: 20140910
